FAERS Safety Report 24240457 (Version 1)
Quarter: 2024Q3

REPORT INFORMATION
  Report Type: Report from Study
  Country: IT (occurrence: IT)
  Receive Date: 20240822
  Receipt Date: 20240822
  Transmission Date: 20241016
  Serious: No
  Sender: SANDOZ
  Company Number: IT-SANDOZ-SDZ2024IT074294

PATIENT
  Age: 13 Year
  Sex: Female
  Weight: 48 kg

DRUGS (1)
  1. OMNITROPE [Suspect]
     Active Substance: SOMATROPIN
     Indication: Growth hormone deficiency
     Dosage: 3.2 MG
     Route: 058
     Dates: start: 20180814

REACTIONS (3)
  - Product dose omission issue [Unknown]
  - Device issue [Unknown]
  - Device occlusion [Unknown]

NARRATIVE: CASE EVENT DATE: 20240818
